FAERS Safety Report 12323823 (Version 2)
Quarter: 2016Q2

REPORT INFORMATION
  Report Type: Spontaneous
  Country: JP (occurrence: JP)
  Receive Date: 20160502
  Receipt Date: 20160504
  Transmission Date: 20160815
  Serious: Yes (Death, Hospitalization)
  Sender: FDA-Public Use
  Company Number: JP-BAYER-2016-081087

PATIENT
  Age: 90 Year
  Sex: Male

DRUGS (2)
  1. HEPARIN [Interacting]
     Active Substance: HEPARIN SODIUM
     Dosage: DAILY DOSE 10000 DF
     Route: 042
  2. ACETYLSALICYLIC ACID({=100 MG) [Suspect]
     Active Substance: ASPIRIN
     Route: 048

REACTIONS (3)
  - Muscle haemorrhage [Fatal]
  - Anaemia [Fatal]
  - Labelled drug-drug interaction medication error [None]
